FAERS Safety Report 23802512 (Version 2)
Quarter: 2024Q2

REPORT INFORMATION
  Report Type: Spontaneous
  Country: TR (occurrence: TR)
  Receive Date: 20240501
  Receipt Date: 20240514
  Transmission Date: 20240716
  Serious: Yes (Other)
  Sender: FDA-Public Use
  Company Number: TR-BRISTOL-MYERS SQUIBB COMPANY-2024-067690

PATIENT
  Age: 83 Year
  Sex: Male

DRUGS (1)
  1. REVLIMID [Suspect]
     Active Substance: LENALIDOMIDE
     Indication: Plasma cell myeloma

REACTIONS (4)
  - Deafness [Unknown]
  - Ear swelling [Unknown]
  - Swelling [Unknown]
  - Erythema [Unknown]
